FAERS Safety Report 8452151-2 (Version None)
Quarter: 2012Q2

REPORT INFORMATION
  Report Type: 
  Country: None (occurrence: None)
  Receive Date: 20120620
  Receipt Date: 20120611
  Transmission Date: 20120825
  Serious: Yes (Death, Hospitalization)
  Sender: FDA-Public Use
  Company Number: JP-GLAXOSMITHKLINE-B0771988A

PATIENT
  Sex: Female

DRUGS (9)
  1. AMLODIPINE [Concomitant]
     Dosage: 5MG PER DAY
     Route: 048
  2. CLONAZEPAM [Concomitant]
     Route: 048
  3. SILECE [Concomitant]
     Route: 065
  4. AMITRIPTYLINE HCL [Concomitant]
     Route: 048
  5. LANSOPRAZOLE [Concomitant]
     Dosage: 15MG PER DAY
     Route: 048
  6. LAMICTAL [Suspect]
     Indication: BIPOLAR DISORDER
     Dosage: 100MG PER DAY
     Route: 048
     Dates: start: 20111006, end: 20111219
  7. ZYPREXA [Concomitant]
     Route: 048
  8. HALCION [Concomitant]
     Route: 048
  9. MICARDIS [Concomitant]
     Dosage: 40MG PER DAY
     Route: 048

REACTIONS (23)
  - LARYNGEAL OEDEMA [None]
  - DRUG ERUPTION [None]
  - HAEMATEMESIS [None]
  - SHOCK HAEMORRHAGIC [None]
  - ASPARTATE AMINOTRANSFERASE INCREASED [None]
  - BLOOD IMMUNOGLOBULIN G INCREASED [None]
  - SWELLING FACE [None]
  - DEVICE RELATED INFECTION [None]
  - ANEURYSM [None]
  - ALANINE AMINOTRANSFERASE INCREASED [None]
  - C-REACTIVE PROTEIN INCREASED [None]
  - PLATELET COUNT INCREASED [None]
  - INFECTIVE ANEURYSM [None]
  - WHITE BLOOD CELL COUNT INCREASED [None]
  - BLOOD IMMUNOGLOBULIN M DECREASED [None]
  - LYMPHOCYTE COUNT DECREASED [None]
  - BRAIN NATRIURETIC PEPTIDE DECREASED [None]
  - RED BLOOD CELL COUNT DECREASED [None]
  - DEATH [None]
  - CARDIAC ARREST [None]
  - GAMMA-GLUTAMYLTRANSFERASE INCREASED [None]
  - FIBRIN D DIMER INCREASED [None]
  - CYTOMEGALOVIRUS TEST POSITIVE [None]
